FAERS Safety Report 7505400-9 (Version None)
Quarter: 2011Q2

REPORT INFORMATION
  Report Type: 
  Country: None (occurrence: None)
  Receive Date: 20110526
  Receipt Date: 20091029
  Transmission Date: 20111010
  Serious: Yes (Other)
  Sender: FDA-Public Use
  Company Number: US-BAYER-200937386NA

PATIENT
  Sex: Male
  Weight: 119 kg

DRUGS (13)
  1. ACETYLSALICYLIC ACID SRT [Concomitant]
     Dosage: 81MG/DAILY
     Route: 048
  2. GLIPIZIDE [Concomitant]
     Dosage: UNK
     Route: 048
     Dates: start: 20000101
  3. LASIX [Concomitant]
     Dosage: 40MG/DAILY
     Route: 042
     Dates: start: 20060101
  4. LABETALOL [Concomitant]
     Dosage: 20MG
     Route: 042
     Dates: start: 20061002
  5. CAPTOPRIL [Concomitant]
     Dosage: 12.5MG/EVERY 6 HOURS
     Route: 048
     Dates: start: 20060930
  6. TRASYLOL [Suspect]
     Indication: CORONARY ARTERY BYPASS
     Dosage: 100 ML, ONCE, LOADING DOSE
     Route: 042
     Dates: start: 20061002, end: 20061002
  7. TRASYLOL [Suspect]
     Indication: TRANSMYOCARDIAL REVASCULARISATION
     Dosage: 25 CC/HR INFUSION
     Route: 042
     Dates: start: 20061002, end: 20061002
  8. NOVOLIN R [Concomitant]
     Dosage: SLIDING SCALE
     Route: 058
     Dates: start: 20060930
  9. RED BLOOD CELLS [Concomitant]
     Dosage: 750 ML
     Dates: start: 20061002
  10. PLASMA [Concomitant]
     Dosage: 400 ML
     Dates: start: 20061002
  11. HEPARIN [Concomitant]
  12. LOVENOX [Concomitant]
     Dosage: 40MG/DAILY
     Route: 058
     Dates: start: 20060930
  13. METOPROLOL TARTRATE [Concomitant]
     Dosage: 50MG/TWICE DAILY
     Route: 048
     Dates: start: 20060930

REACTIONS (4)
  - PAIN [None]
  - RENAL FAILURE [None]
  - INJURY [None]
  - UNEVALUABLE EVENT [None]
